FAERS Safety Report 7331507-5 (Version None)
Quarter: 2011Q1

REPORT INFORMATION
  Report Type: 
  Country: None (occurrence: None)
  Receive Date: 20110304
  Receipt Date: 20110223
  Transmission Date: 20110831
  Serious: Yes (Hospitalization, Other)
  Sender: FDA-Public Use
  Company Number: US-SANOFI-AVENTIS-2010SA012420

PATIENT
  Age: 87 Year
  Sex: Female
  Weight: 92.5 kg

DRUGS (9)
  1. QUINOLONE ANTIBACTERIALS [Suspect]
  2. METOPROLOL [Concomitant]
  3. LOZOL [Concomitant]
  4. MICARDIS [Concomitant]
  5. MULTAQ [Suspect]
     Indication: ATRIAL FIBRILLATION
     Route: 048
     Dates: start: 20091214, end: 20100123
  6. ASPIRIN [Concomitant]
  7. NORVASC [Concomitant]
  8. POTASSIUM [Concomitant]
  9. COUMADIN [Concomitant]

REACTIONS (7)
  - CARDIAC FAILURE [None]
  - RESPIRATORY TRACT INFECTION [None]
  - DYSPNOEA [None]
  - ALANINE AMINOTRANSFERASE INCREASED [None]
  - ATRIAL FIBRILLATION [None]
  - HEPATOCELLULAR INJURY [None]
  - ASPARTATE AMINOTRANSFERASE INCREASED [None]
